FAERS Safety Report 4858127-6 (Version None)
Quarter: 2005Q4

REPORT INFORMATION
  Report Type: 
  Country: None (occurrence: None)
  Receive Date: 20051219
  Receipt Date: 20050315
  Transmission Date: 20060501
  Serious: No
  Sender: FDA-Public Use
  Company Number: US-GLAXOSMITHKLINE-A0549753A

PATIENT
  Age: 57 Year
  Sex: Female

DRUGS (3)
  1. NICODERM CQ [Suspect]
  2. COMMIT [Suspect]
  3. LINIMENT [Concomitant]

REACTIONS (4)
  - APPLICATION SITE PAPULES [None]
  - APPLICATION SITE PRURITUS [None]
  - NAUSEA [None]
  - VOMITING [None]
